FAERS Safety Report 8172816-X (Version None)
Quarter: 2012Q1

REPORT INFORMATION
  Report Type: 
  Country: None (occurrence: None)
  Receive Date: 20120223
  Receipt Date: 20120214
  Transmission Date: 20120608
  Serious: Yes (Hospitalization, Other)
  Sender: FDA-Public Use
  Company Number: AUR-APL-2012-01021

PATIENT
  Age: 71 Year
  Sex: Male

DRUGS (3)
  1. ASPIRIN [Concomitant]
  2. SIMVASTATIN [Suspect]
     Indication: PRODUCT USED FOR UNKNOWN INDICATION
     Dosage: 40 MG
  3. CYPROTERONE ACETATE (CYPROTERONE ACETATE) [Suspect]
     Indication: PROSTATE CANCER
     Dosage: 300 MG
     Dates: start: 20110601

REACTIONS (1)
  - RHABDOMYOLYSIS [None]
